FAERS Safety Report 20245538 (Version 8)
Quarter: 2023Q1

REPORT INFORMATION
  Report Type: Report from Study
  Country: US (occurrence: US)
  Receive Date: 20211229
  Receipt Date: 20230103
  Transmission Date: 20230418
  Serious: No
  Sender: FDA-Public Use
  Company Number: US-NOVARTISTESTPH-NVSC2021US298420

PATIENT
  Sex: Female

DRUGS (4)
  1. TREPROSTINIL [Suspect]
     Active Substance: TREPROSTINIL
     Indication: Pulmonary arterial hypertension
     Dosage: 128 NG/KG/MIN, CONTINUOUS
     Route: 042
     Dates: start: 20211103
  2. TREPROSTINIL [Suspect]
     Active Substance: TREPROSTINIL
     Dosage: 128 NG/KG/MIN, CONTINUOUS
     Route: 042
     Dates: start: 202112
  3. TREPROSTINIL [Suspect]
     Active Substance: TREPROSTINIL
     Dosage: 128 NG/KG/MIN, CONTINUOUS
     Route: 042
     Dates: start: 20220105
  4. TREPROSTINIL [Suspect]
     Active Substance: TREPROSTINIL
     Dosage: 128 NG/KG/MIN, CONTINUOUS
     Route: 042
     Dates: start: 20211220

REACTIONS (9)
  - Gastrointestinal disorder [Unknown]
  - Dyspnoea exertional [Unknown]
  - Oedema peripheral [Unknown]
  - Gastrointestinal pain [Unknown]
  - Mobility decreased [Unknown]
  - Arthritis [Unknown]
  - Headache [Unknown]
  - Abdominal discomfort [Unknown]
  - Diarrhoea [Unknown]
